FAERS Safety Report 4340157-4 (Version None)
Quarter: 2004Q2

REPORT INFORMATION
  Report Type: 
  Country: None (occurrence: None)
  Receive Date: 20040416
  Receipt Date: 20040416
  Transmission Date: 20050107
  Serious: Yes (Death)
  Sender: FDA-Public Use
  Company Number: None

PATIENT
  Age: 72 Year
  Sex: Female

DRUGS (6)
  1. EPIRUBICIN [Suspect]
     Indication: BREAST CANCER
     Dosage: 70MG Q 21 DAYS INTRAVENOUS
     Route: 042
     Dates: start: 20040303, end: 20040303
  2. IRINOTECAN 40MG/2ML AND 100MG/5ML PHARMACIA [Suspect]
     Indication: COLORECTAL CANCER
     Dosage: 140 MG Q 21 DAYS INTRAVENOUS
     Route: 042
     Dates: start: 20040303, end: 20040303
  3. LOTENSIN [Concomitant]
  4. DURAGESIC [Concomitant]
  5. VICODIN [Concomitant]
  6. OXYCONTIN [Concomitant]

REACTIONS (8)
  - APHASIA [None]
  - ASTHENIA [None]
  - CARDIAC ARREST [None]
  - CEREBROVASCULAR ACCIDENT [None]
  - DEPRESSED LEVEL OF CONSCIOUSNESS [None]
  - FACIAL PALSY [None]
  - HYPERKALAEMIA [None]
  - HYPONATRAEMIA [None]
